FAERS Safety Report 8131355-2 (Version None)
Quarter: 2012Q1

REPORT INFORMATION
  Report Type: 
  Country: None (occurrence: None)
  Receive Date: 20120207
  Receipt Date: 20120124
  Transmission Date: 20120608
  Serious: Yes (Death, Other)
  Sender: FDA-Public Use
  Company Number: 2011US000089

PATIENT
  Age: 73 Year
  Sex: Female

DRUGS (2)
  1. LASIX [Concomitant]
  2. ENTEREG [Suspect]
     Indication: POSTOPERATIVE ILEUS
     Dosage: 12 MG;   ;PO
     Route: 048
     Dates: start: 20110922, end: 20110925

REACTIONS (14)
  - PULMONARY HYPERTENSION [None]
  - RESPIRATORY FAILURE [None]
  - SINUS TACHYCARDIA [None]
  - BUNDLE BRANCH BLOCK LEFT [None]
  - MYOCARDIAL INFARCTION [None]
  - CARDIO-RESPIRATORY ARREST [None]
  - PYREXIA [None]
  - LACTIC ACIDOSIS [None]
  - SMALL INTESTINAL PERFORATION [None]
  - AGITATION [None]
  - LOBAR PNEUMONIA [None]
  - SEPSIS [None]
  - PULSELESS ELECTRICAL ACTIVITY [None]
  - DILATATION ATRIAL [None]
